FAERS Safety Report 23578438 (Version 4)
Quarter: 2024Q4

REPORT INFORMATION
  Report Type: Spontaneous
  Country: US (occurrence: US)
  Receive Date: 20240229
  Receipt Date: 20241018
  Transmission Date: 20250115
  Serious: No
  Sender: UCB
  Company Number: US-UCBSA-2023051284

PATIENT
  Sex: Male

DRUGS (5)
  1. RYSTIGGO [Suspect]
     Active Substance: ROZANOLIXIZUMAB-NOLI
     Indication: Myasthenia gravis
     Dosage: 6 MILLILITER, WEEKLY (QW)
     Route: 058
     Dates: start: 202310
  2. RYSTIGGO [Suspect]
     Active Substance: ROZANOLIXIZUMAB-NOLI
     Dosage: 840 MILLIGRAM (6 ML), WEEKLY (QW)
     Route: 058
     Dates: start: 202310, end: 20231116
  3. RYSTIGGO [Suspect]
     Active Substance: ROZANOLIXIZUMAB-NOLI
     Dosage: 840 MILLIGRAM (6 ML), WEEKLY (QW)
     Route: 058
     Dates: start: 20231221
  4. EPINEPHRINE [Concomitant]
     Active Substance: EPINEPHRINE
     Indication: Product used for unknown indication
     Dosage: UNK
  5. FERROUS SULFATE [Concomitant]
     Active Substance: FERROUS SULFATE
     Indication: Product used for unknown indication
     Dosage: UNK

REACTIONS (14)
  - Headache [Recovered/Resolved]
  - Diarrhoea [Unknown]
  - Throat irritation [Unknown]
  - Productive cough [Not Recovered/Not Resolved]
  - Vomiting [Unknown]
  - Dysarthria [Recovering/Resolving]
  - Facial paresis [Unknown]
  - Asthenia [Recovering/Resolving]
  - Respiratory tract congestion [Unknown]
  - Feeling cold [Unknown]
  - Muscular weakness [Recovering/Resolving]
  - Jaw disorder [Recovering/Resolving]
  - Product dose omission issue [Unknown]
  - Therapy interrupted [Unknown]

NARRATIVE: CASE EVENT DATE: 20230101
